FAERS Safety Report 6747674-8 (Version None)
Quarter: 2010Q2

REPORT INFORMATION
  Report Type: 
  Country: None (occurrence: None)
  Receive Date: 20100528
  Receipt Date: 20100526
  Transmission Date: 20101027
  Serious: Yes (Life-Threatening)
  Sender: FDA-Public Use
  Company Number: IN-GILEAD-2010-0029439

PATIENT
  Sex: Male
  Weight: 54 kg

DRUGS (8)
  1. TRUVADA [Suspect]
     Indication: HIV INFECTION
     Route: 048
     Dates: start: 20100505
  2. EFAVIRENZ [Suspect]
     Indication: HIV INFECTION
     Route: 048
     Dates: start: 20100505
  3. CIPROHEPTIDINE [Concomitant]
     Indication: DECREASED APPETITE
  4. CALCIUM CARBONATE + VITAMIN D3 [Concomitant]
     Indication: ARTHRALGIA
  5. CETRIZINE [Concomitant]
     Indication: PRURITUS
  6. CALADRYL [Concomitant]
     Indication: PRURITUS
  7. PARACETAMOL [Concomitant]
     Indication: TOOTHACHE
  8. MULTI-VITAMIN [Concomitant]
     Indication: SUPPLEMENTATION THERAPY

REACTIONS (1)
  - LIVER FUNCTION TEST ABNORMAL [None]
